FAERS Safety Report 21211014 (Version 2)
Quarter: 2022Q3

REPORT INFORMATION
  Report Type: Spontaneous
  Country: IE (occurrence: IE)
  Receive Date: 20220815
  Receipt Date: 20220909
  Transmission Date: 20221026
  Serious: Yes (Death, Hospitalization, Other)
  Sender: FDA-Public Use
  Company Number: None

PATIENT
  Age: 83 Year
  Sex: Male
  Weight: 75 kg

DRUGS (10)
  1. ENOXAPARIN SODIUM [Suspect]
     Active Substance: ENOXAPARIN SODIUM
     Dosage: UNK
  2. ALFUZOSIN [Concomitant]
     Active Substance: ALFUZOSIN
     Dosage: UNK(ADVISED TO STOP ALFUZOSIN)
     Dates: end: 20220309
  3. MORPHINE [Concomitant]
     Active Substance: MORPHINE
     Dosage: UNK(MORPHINE IS DETECTED AT A LEVEL OF{ 0.025 UG/ML)
  4. ACETAMINOPHEN [Concomitant]
     Active Substance: ACETAMINOPHEN
     Dosage: UNK(PARACETAMOL IS DETECTED AT A LEVEL OF 14 UG/ML IN THE THERAPEUTIC RANGE.)
  5. ACETAMINOPHEN [Concomitant]
     Active Substance: ACETAMINOPHEN
     Dosage: PARACETAMOL IS DETECTED AT A LEVEL OF 14 UG/ML IN THE THERAPEUTIC RANGE.
  6. LIDOCAINE HYDROCHLORIDE [Concomitant]
     Active Substance: LIDOCAINE HYDROCHLORIDE
     Indication: Resuscitation
     Dosage: UNK(LIDOCAINE, USED IN RESUSCITATION IS DETECTED AT A LEVEL OF 0.068 UG/ML IN THE SUBTHERAPEUTIC RAN
  7. CLOPIDOGREL [Concomitant]
     Active Substance: CLOPIDOGREL BISULFATE
     Dosage: UNK
  8. IRON [Concomitant]
     Active Substance: IRON
     Dosage: UNK
  9. NITROGLYCERIN [Concomitant]
     Active Substance: NITROGLYCERIN
     Dosage: UNK
  10. ASPIRIN [Concomitant]
     Active Substance: ASPIRIN
     Dosage: UNK

REACTIONS (5)
  - Coronary artery disease [Fatal]
  - Cardiac failure congestive [Fatal]
  - Ischaemic cardiomyopathy [Fatal]
  - Abdominal wall haematoma [Fatal]
  - Haematoma [Fatal]

NARRATIVE: CASE EVENT DATE: 20220311
